FAERS Safety Report 8311853-9 (Version None)
Quarter: 2012Q2

REPORT INFORMATION
  Report Type: 
  Country: None (occurrence: None)
  Receive Date: 20120425
  Receipt Date: 20120414
  Transmission Date: 20120825
  Serious: Yes (Hospitalization, Other)
  Sender: FDA-Public Use
  Company Number: FR-ACTELION-A-CH2011-45031

PATIENT
  Sex: Male
  Weight: 21.5 kg

DRUGS (2)
  1. ZAVESCA [Suspect]
     Indication: NIEMANN-PICK DISEASE
     Dosage: 150 MG, TID
     Route: 048
     Dates: start: 20080710
  2. METHYLPHENIDATE [Concomitant]

REACTIONS (3)
  - GASTROSTOMY [None]
  - REFUSAL OF TREATMENT BY PATIENT [None]
  - DRUG INTOLERANCE [None]
